FAERS Safety Report 6443443-7 (Version None)
Quarter: 2009Q4

REPORT INFORMATION
  Report Type: 
  Country: None (occurrence: None)
  Receive Date: 20091117
  Receipt Date: 20091106
  Transmission Date: 20100525
  Serious: Yes (Hospitalization, Other)
  Sender: FDA-Public Use
  Company Number: DK-NOVOPROD-300469

PATIENT
  Sex: Female
  Weight: 91 kg

DRUGS (7)
  1. LEVEMIR [Suspect]
     Indication: DRUG USE FOR UNKNOWN INDICATION
     Dosage: 50 IU DAILY SC AT GESTATIONAL WEEK 9
     Route: 058
  2. NOVORAPID [Suspect]
     Indication: DRUG USE FOR UNKNOWN INDICATION
     Dosage: 26 IU DAILY SC AT GESTATIONAL WEEK 9
     Route: 058
  3. ELTROXIN [Concomitant]
     Indication: DRUG USE FOR UNKNOWN INDICATION
     Dosage: 100 MICROGRAMS DAILY ORAL
     Route: 048
     Dates: start: 20080630
  4. ADALAT [Concomitant]
     Indication: DRUG USE FOR UNKNOWN INDICATION
     Dosage: 60 MG DAILY ORAL
     Route: 048
     Dates: start: 20081103
  5. METYLDOPA [Concomitant]
     Indication: DRUG USE FOR UNKNOWN INDICATION
     Dosage: 2000 MG DAILY ORAL
     Route: 048
     Dates: start: 20080616
  6. TRANDATE [Concomitant]
     Indication: DRUG USE FOR UNKNOWN INDICATION
     Dosage: 400 MG DAILY ORAL
     Route: 048
     Dates: start: 20081006
  7. CELESTON                           /00008501/ [Concomitant]
     Dosage: 24 MG INTRAMUSCULAR
     Route: 030
     Dates: start: 20081104, end: 20081105

REACTIONS (3)
  - DRUG EXPOSURE DURING PREGNANCY [None]
  - PRE-ECLAMPSIA [None]
  - UMBILICAL CORD VASCULAR DISORDER [None]
